FAERS Safety Report 9299154 (Version 1)
Quarter: 2013Q2

REPORT INFORMATION
  Report Type: Spontaneous
  Country: US (occurrence: US)
  Receive Date: 20130520
  Receipt Date: 20130520
  Transmission Date: 20140414
  Serious: No
  Sender: FDA-Public Use
  Company Number: US-B.I. PHARMACEUTICALS,INC./RIDGEFIELD-2013-BI-13585BP

PATIENT
  Sex: Female
  Weight: 78.47 kg

DRUGS (3)
  1. MOBIC [Suspect]
     Indication: ARTHRITIS
  2. METOPROLOL [Concomitant]
     Indication: HYPERTENSION
     Dosage: 50 MG
  3. RAMIPRIL [Concomitant]
     Indication: HYPERTENSION
     Dosage: 10 MG

REACTIONS (1)
  - Drug ineffective [Unknown]
